FAERS Safety Report 10553448 (Version 5)
Quarter: 2015Q2

REPORT INFORMATION
  Report Type: Spontaneous
  Country: GB (occurrence: GB)
  Receive Date: 20141030
  Receipt Date: 20150422
  Transmission Date: 20150821
  Serious: Yes (Other)
  Sender: FDA-Public Use
  Company Number: GB-BEH-2014045824

PATIENT
  Age: 71 Year
  Sex: Female

DRUGS (8)
  1. HIZENTRA [Suspect]
     Active Substance: HUMAN IMMUNOGLOBULIN G
     Indication: IMMUNE SYSTEM DISORDER
     Dosage: ABOUT 1 YEAR AGO, START DATE IN 2012 TO ?-SEP-2014; INJECTION ONCE WEEKLY (USE TO BE 3 TIMES WEEKLY)
  2. HIZENTRA [Suspect]
     Active Substance: HUMAN IMMUNOGLOBULIN G
     Indication: IMMUNODEFICIENCY
  3. PROPRANOLOL [Concomitant]
     Active Substance: PROPRANOLOL\PROPRANOLOL HYDROCHLORIDE
  4. HIZENTRA [Suspect]
     Active Substance: HUMAN IMMUNOGLOBULIN G
  5. VIGAM [Suspect]
     Active Substance: HUMAN IMMUNOGLOBULIN G
  6. AMOXICILLIN. [Concomitant]
     Active Substance: AMOXICILLIN
     Indication: PROPHYLAXIS
  7. VITAMIN D [Concomitant]
     Active Substance: CHOLECALCIFEROL
     Dosage: 800 MG OD
  8. HIZENTRA [Suspect]
     Active Substance: HUMAN IMMUNOGLOBULIN G

REACTIONS (14)
  - Muscular weakness [Unknown]
  - Myocarditis [Unknown]
  - Arthropathy [Unknown]
  - Condition aggravated [Not Recovered/Not Resolved]
  - Fatigue [Not Recovered/Not Resolved]
  - Dilatation atrial [Not Recovered/Not Resolved]
  - Blood creatine phosphokinase increased [Unknown]
  - Neurosis [Unknown]
  - Feeling cold [Unknown]
  - Muscular weakness [Not Recovered/Not Resolved]
  - Abasia [Unknown]
  - Malaise [Unknown]
  - Myalgia [Not Recovered/Not Resolved]
  - Troponin increased [Unknown]

NARRATIVE: CASE EVENT DATE: 20140212
